FAERS Safety Report 7939122-7 (Version None)
Quarter: 2011Q4

REPORT INFORMATION
  Report Type: 
  Country: None (occurrence: None)
  Receive Date: 20111124
  Receipt Date: 20111115
  Transmission Date: 20120403
  Serious: Yes (Hospitalization, Other)
  Sender: FDA-Public Use
  Company Number: US-ROCHE-1013763

PATIENT
  Age: 57 Year
  Sex: Female
  Weight: 41.73 kg

DRUGS (6)
  1. PACLITAXEL [Suspect]
     Indication: OVARIAN EPITHELIAL CANCER
     Dosage: ON DAY 1 OF CYCLE 1
     Route: 042
     Dates: start: 20110908
  2. PACLITAXEL [Suspect]
     Dosage: OVER 3 HRS ON DAY 1.
     Route: 042
     Dates: start: 20110908
  3. AVASTIN [Suspect]
     Indication: OVARIAN EPITHELIAL CANCER
     Dosage: OVER 30-90 MIN ON DAY 1, BEGINNING WITH CYCLE 2.
     Route: 042
     Dates: start: 20110908
  4. CISPLATIN [Suspect]
     Indication: OVARIAN EPITHELIAL CANCER
     Dosage: ON DAY 2
     Route: 042
     Dates: start: 20110908
  5. PACLITAXEL [Suspect]
     Dosage: ON DAY 8 OF CYCLE 2
     Route: 042
  6. PACLITAXEL [Suspect]
     Dosage: ON DAY 8 OF CYCLE 2
     Route: 042

REACTIONS (5)
  - HEADACHE [None]
  - WHITE BLOOD CELL COUNT DECREASED [None]
  - NEUTROPHIL COUNT DECREASED [None]
  - HYPERTENSION [None]
  - HYPOCALCAEMIA [None]
